FAERS Safety Report 6423889-3 (Version None)
Quarter: 2009Q4

REPORT INFORMATION
  Report Type: 
  Country: None (occurrence: None)
  Receive Date: 20091102
  Receipt Date: 20091019
  Transmission Date: 20100525
  Serious: Yes (Other)
  Sender: FDA-Public Use
  Company Number: AU-MYLANLABS-2009S1018170

PATIENT
  Age: 6 Year
  Sex: Male

DRUGS (3)
  1. ISOTRETINOIN [Suspect]
     Indication: NEUROBLASTOMA
     Dosage: 160 MG/M2 FOR 14 DAYS
  2. INVESTIGATIONAL DRUG [Interacting]
     Indication: NEUROBLASTOMA
     Dosage: ALTERNATE THERAPY WITH ANTI-GD2 PLUS GM-CSF AND ANTI-GD2 PLUS INTERLEUKIN 2
  3. INTERLEUKIN-3 [Concomitant]
     Indication: NEUROBLASTOMA

REACTIONS (3)
  - BONE LESION [None]
  - DRUG INTERACTION [None]
  - HYPERCALCAEMIA [None]
